FAERS Safety Report 23228991 (Version 1)
Quarter: 2023Q4

REPORT INFORMATION
  Report Type: Spontaneous
  Country: GB (occurrence: GB)
  Receive Date: 20231126
  Receipt Date: 20231126
  Transmission Date: 20240109
  Serious: Yes (Other)
  Sender: FDA-Public Use
  Company Number: GB-INSUD PHARMA-2311GB08173

PATIENT

DRUGS (6)
  1. TESTOSTERONE [Suspect]
     Active Substance: TESTOSTERONE
     Indication: Muscle building therapy
     Dosage: HIGH DOSAGE, ONCE PER WEEK
     Route: 065
  2. TESTOSTERONE [Suspect]
     Active Substance: TESTOSTERONE
     Dosage: 150 MG WEEKLY
     Route: 030
  3. TESTOSTERONE KETOLAURATE\TESTOSTERONE ISOCAPROATE\TESTOSTERONE PHENYLP [Suspect]
     Active Substance: TESTOSTERONE ISOCAPROATE\TESTOSTERONE KETOLAURATE\TESTOSTERONE PHENYLPROPIONATE\TESTOSTERONE PROPION
     Indication: Muscle building therapy
     Dosage: HIGH DOSAGE, ONCE PER WEEK
     Route: 065
  4. NANDROLONE [Suspect]
     Active Substance: NANDROLONE
     Indication: Muscle building therapy
     Dosage: HIGH DOSAGE, ONCE PER WEEK
     Route: 030
  5. ANADROL [Suspect]
     Active Substance: OXYMETHOLONE
     Indication: Muscle building therapy
     Dosage: DAILY DOSE
     Route: 048
  6. DIANABOL [Suspect]
     Active Substance: METHANDROSTENOLONE
     Indication: Muscle building therapy
     Dosage: DAILY DOSE
     Route: 048

REACTIONS (2)
  - Erectile dysfunction [Recovered/Resolved]
  - Drug abuse [Recovered/Resolved]
